FAERS Safety Report 15714984 (Version 2)
Quarter: 2018Q4

REPORT INFORMATION
  Report Type: Spontaneous
  Country: KR (occurrence: KR)
  Receive Date: 20181212
  Receipt Date: 20181219
  Transmission Date: 20190205
  Serious: Yes (Death)
  Sender: FDA-Public Use
  Company Number: KR-TAKEDA-2018TUS035387

PATIENT
  Age: 18 Year
  Sex: Female

DRUGS (1)
  1. ICLUSIG [Suspect]
     Active Substance: PONATINIB
     Indication: OVARIAN CANCER RECURRENT
     Dosage: 45 MG, QD
     Route: 048
     Dates: start: 201807

REACTIONS (2)
  - Disease progression [Fatal]
  - Product use in unapproved indication [Unknown]

NARRATIVE: CASE EVENT DATE: 201807
